FAERS Safety Report 9109528 (Version 4)
Quarter: 2013Q2

REPORT INFORMATION
  Report Type: Spontaneous
  Country: IE (occurrence: IE)
  Receive Date: 20130222
  Receipt Date: 20130614
  Transmission Date: 20140414
  Serious: Yes (Other)
  Sender: FDA-Public Use
  Company Number: IE-B.I. PHARMACEUTICALS,INC./RIDGEFIELD-2013-UK-00253UK

PATIENT
  Age: 74 Year
  Sex: Female
  Weight: 65 kg

DRUGS (11)
  1. PRADAXA [Suspect]
     Indication: ATRIAL FIBRILLATION
     Dosage: 300 MG
     Route: 048
     Dates: start: 20120925, end: 20130222
  2. PRADAXA [Suspect]
     Dosage: 150 MG
     Route: 048
  3. DOXAZOSIN [Concomitant]
     Dosage: 8 MG
  4. AMITRIPTYLINE [Concomitant]
     Dosage: 25 MG
  5. ATORVASTATIN [Concomitant]
     Dosage: 10 MG
  6. PERINDOPRIL/INDAPAMIDE [Concomitant]
  7. LERCANIDIPINE [Concomitant]
     Dosage: 10 MG
  8. BISOPROLOL [Concomitant]
     Dosage: 5 MG
  9. CALCIUM/COLECALCIFEROL [Concomitant]
  10. PREGABALIN [Concomitant]
     Dosage: 25 MG
  11. ALLOPURINOL [Concomitant]
     Dosage: 100 MG

REACTIONS (1)
  - Glomerular filtration rate decreased [Recovered/Resolved]
